FAERS Safety Report 11587443 (Version 8)
Quarter: 2015Q4

REPORT INFORMATION
  Report Type: Spontaneous
  Country: US (occurrence: US)
  Receive Date: 20151001
  Receipt Date: 20151117
  Transmission Date: 20160304
  Serious: Yes (Other)
  Sender: FDA-Public Use
  Company Number: CHPA2015US011473

PATIENT
  Age: 89 Year
  Sex: Female

DRUGS (5)
  1. CORTISONE [Concomitant]
     Active Substance: CORTISONE\HYDROCORTISONE
     Indication: PRODUCT USED FOR UNKNOWN INDICATION
     Route: 065
  2. VOLTAREN [Suspect]
     Active Substance: DICLOFENAC SODIUM
     Indication: ARTHRITIS
     Dosage: LITTLE LESS THAN 2 GRAMS, TID
     Route: 061
     Dates: start: 20150927
  3. FLOMAX [Suspect]
     Active Substance: TAMSULOSIN HYDROCHLORIDE
     Indication: POLLAKIURIA
     Dosage: UNK
     Route: 065
     Dates: start: 2015, end: 2015
  4. VOLTAREN [Suspect]
     Active Substance: DICLOFENAC SODIUM
     Indication: PRODUCT USED FOR UNKNOWN INDICATION
     Route: 048
  5. VOLTAREN [Suspect]
     Active Substance: DICLOFENAC SODIUM
     Dosage: UNK
     Route: 065

REACTIONS (8)
  - Asthenia [Recovered/Resolved]
  - Wrong technique in product usage process [Unknown]
  - Drug administered at inappropriate site [Unknown]
  - Chondropathy [Unknown]
  - Fatigue [Unknown]
  - Loss of consciousness [Recovered/Resolved]
  - Fall [Recovered/Resolved]
  - Inappropriate schedule of drug administration [Unknown]

NARRATIVE: CASE EVENT DATE: 2015
